FAERS Safety Report 6786906-7 (Version None)
Quarter: 2010Q2

REPORT INFORMATION
  Report Type: 
  Country: None (occurrence: None)
  Receive Date: 20100623
  Receipt Date: 20100617
  Transmission Date: 20101027
  Serious: Yes (Hospitalization)
  Sender: FDA-Public Use
  Company Number: JP-EISAI INC.-E2020-06883-SPO-JP

PATIENT
  Age: 85 Year
  Sex: Male
  Weight: 48 kg

DRUGS (7)
  1. ARICEPT [Suspect]
     Indication: DEMENTIA ALZHEIMER'S TYPE
     Route: 048
     Dates: start: 20090101, end: 20100113
  2. ARICEPT [Suspect]
     Route: 048
     Dates: start: 20100401, end: 20100401
  3. SPIROPENT [Concomitant]
     Dosage: UNKNOWN
     Route: 048
  4. CLEANAL [Concomitant]
     Dosage: UNKNOWN
     Route: 048
  5. JUVELA [Concomitant]
     Dosage: UNKNOWN
     Route: 048
  6. SPIRIVA [Concomitant]
     Indication: EMPHYSEMA
     Dosage: UNKNOWN
     Route: 048
  7. SEREVENT [Concomitant]
     Indication: EMPHYSEMA
     Dosage: UNKNOWN
     Route: 048

REACTIONS (2)
  - PNEUMONIA [None]
  - WHITE BLOOD CELL COUNT DECREASED [None]
